FAERS Safety Report 18657242 (Version 1)
Quarter: 2020Q4

REPORT INFORMATION
  Report Type: Spontaneous
  Country: EC (occurrence: EC)
  Receive Date: 20201223
  Receipt Date: 20201223
  Transmission Date: 20210114
  Serious: Yes (Hospitalization)
  Sender: FDA-Public Use
  Company Number: EC-BAYER-2020-279906

PATIENT

DRUGS (1)
  1. APRONAX [Suspect]
     Active Substance: NAPROXEN SODIUM
     Dosage: UNK

REACTIONS (1)
  - Renal hypertension [None]
